FAERS Safety Report 15752224 (Version 10)
Quarter: 2020Q4

REPORT INFORMATION
  Report Type: Report from Study
  Country: US (occurrence: US)
  Receive Date: 20181221
  Receipt Date: 20201223
  Transmission Date: 20210113
  Serious: Yes (Hospitalization, Other)
  Sender: FDA-Public Use
  Company Number: US-BRISTOL-MYERS SQUIBB COMPANY-BMS-2018-120426

PATIENT
  Age: 57 Year
  Sex: Female

DRUGS (1)
  1. APIXABAN [Suspect]
     Active Substance: APIXABAN
     Indication: CEREBROVASCULAR ACCIDENT PROPHYLAXIS
     Dosage: UNK
     Route: 065
     Dates: start: 20170803

REACTIONS (20)
  - Cardiac disorder [Unknown]
  - Rotator cuff syndrome [Unknown]
  - Epistaxis [Unknown]
  - Nasopharyngitis [Unknown]
  - Atrial fibrillation [Recovered/Resolved]
  - Weight decreased [Unknown]
  - Skin laceration [Unknown]
  - Muscle atrophy [Recovering/Resolving]
  - Gallbladder disorder [Unknown]
  - Tachycardia [Unknown]
  - Contusion [Recovering/Resolving]
  - Product dose omission issue [Unknown]
  - Cough [Unknown]
  - Arrhythmia [Unknown]
  - Dyspnoea [Unknown]
  - COVID-19 [Recovered/Resolved]
  - Bradycardia [Not Recovered/Not Resolved]
  - Haemorrhage [Unknown]
  - Hypertension [Unknown]
  - Thermal burn [Unknown]

NARRATIVE: CASE EVENT DATE: 201807
